FAERS Safety Report 5139801-3 (Version None)
Quarter: 2006Q4

REPORT INFORMATION
  Report Type: 
  Country: None (occurrence: None)
  Receive Date: 20061025
  Receipt Date: 20060208
  Transmission Date: 20070319
  Serious: Yes (Death, Congenital Anomaly)
  Sender: FDA-Public Use
  Company Number: S06-USA-04378-02

PATIENT
  Sex: Male

DRUGS (2)
  1. CELEXA [Suspect]
     Dates: start: 20021210, end: 20030501
  2. CLOMIPHENE CITRATE (CLOMIPHENE) [Concomitant]

REACTIONS (14)
  - ACUTE RESPIRATORY FAILURE [None]
  - ATRIAL SEPTAL DEFECT [None]
  - BRAIN DAMAGE [None]
  - BRONCHOPULMONARY DYSPLASIA [None]
  - CAESAREAN SECTION [None]
  - CEREBRAL PALSY [None]
  - CHRONIC RESPIRATORY FAILURE [None]
  - CONGENITAL ANOMALY [None]
  - CONVULSION [None]
  - DRUG EXPOSURE DURING PREGNANCY [None]
  - OPTIC NERVE HYPOPLASIA [None]
  - PNEUMONIA [None]
  - PULMONARY HYPERTENSION [None]
  - VENTRICULAR SEPTAL DEFECT [None]
